FAERS Safety Report 10590061 (Version 2)
Quarter: 2014Q4

REPORT INFORMATION
  Report Type: Spontaneous
  Country: DE (occurrence: DE)
  Receive Date: 20141118
  Receipt Date: 20141118
  Transmission Date: 20150529
  Serious: Yes (Hospitalization)
  Sender: FDA-Public Use
  Company Number: DE-TEVA-516862GER

PATIENT
  Age: 64 Year
  Sex: Female

DRUGS (10)
  1. DALMADORM 10 [Interacting]
     Active Substance: FLURAZEPAM\FLURAZEPAM HYDROCHLORIDE
     Route: 065
  2. TRUXAL 65 [Concomitant]
     Dosage: 60 UNKNOWN DAILY;
  3. TRUXAL [Concomitant]
     Active Substance: CHLORPROTHIXENE
     Dosage: 60 UNKNOWN DAILY;
  4. CONVULEX 300 [Concomitant]
     Dosage: 900 MILLIGRAM DAILY;
  5. MCP [Concomitant]
     Active Substance: METOCLOPRAMIDE HYDROCHLORIDE
     Indication: ABDOMINAL DISCOMFORT
  6. TRUXAL [Concomitant]
     Active Substance: CHLORPROTHIXENE
  7. PANTOPRAZOL 20 [Concomitant]
     Dosage: 20 UNKNOWN DAILY;
  8. CLOZAPIN [Suspect]
     Active Substance: CLOZAPINE
     Indication: PSYCHOTIC DISORDER
     Dosage: 400 MILLIGRAM DAILY;
     Route: 048
  9. MONO EMBOLEX [Concomitant]
     Dosage: 5 MILLIGRAM DAILY;
     Route: 058
  10. NOVAMINSULFON 500 MG [Concomitant]
     Dosage: 1500 MILLIGRAM DAILY;

REACTIONS (6)
  - Fall [Recovered/Resolved]
  - Drug interaction [Recovered/Resolved]
  - Restlessness [Recovered/Resolved]
  - Disturbance in attention [Recovered/Resolved]
  - Asthenia [Recovered/Resolved]
  - Overdose [Unknown]

NARRATIVE: CASE EVENT DATE: 201406
